FAERS Safety Report 21496768 (Version 1)
Quarter: 2022Q4

REPORT INFORMATION
  Report Type: Spontaneous
  Country: NL (occurrence: NL)
  Receive Date: 20221022
  Receipt Date: 20221022
  Transmission Date: 20230113
  Serious: Yes (Life-Threatening, Hospitalization)
  Sender: FDA-Public Use
  Company Number: None

PATIENT
  Sex: Female
  Weight: 60.5 kg

DRUGS (10)
  1. HALOPERIDOL [Suspect]
     Active Substance: HALOPERIDOL
     Indication: Restlessness
     Dosage: 1 MILLIGRAM DAILY; 2 X A DAY 1 PIECE ,  / BRAND NAME NOT SPECIFIED , DURATION : 68 DAYS
     Dates: start: 20220707, end: 20220913
  2. ENALAPRIL [Concomitant]
     Active Substance: ENALAPRIL
     Indication: Product used for unknown indication
     Dosage: FORM STRENGTH : 10 MG (MILLIGRAM) / BRAND NAME NOT SPECIFIED , THERAPY START DATE AND END DATE : ASK
  3. RHINOCORT [Concomitant]
     Active Substance: BUDESONIDE
     Indication: Product used for unknown indication
     Dosage: 32 UG/DOSE (MICROGRAMS PER DOSE)  BUDESONIDE NOSE SPRAY 32UG/DO / RHINOCORT MIST NOSE SPRAY 32MCG/DO
  4. TRAZODONE [Concomitant]
     Active Substance: TRAZODONE HYDROCHLORIDE
     Indication: Product used for unknown indication
     Dosage: FORM STRENGTH : 100 MG (MILLIGRAM) , / BRAND NAME NOT SPECIFIED , THERAPY START DATE AND END DATE :
  5. VOLCOLON [Concomitant]
     Indication: Product used for unknown indication
     Dosage: SACHET (GRANULES), 3.6 G (GRAMS)  PLANTAGO OVATA GRANULATE 3.6G / VOLCOLON GRANULATE SUGAR-FREE 4G I
  6. AKINETON [Concomitant]
     Active Substance: BIPERIDEN HYDROCHLORIDE
     Indication: Product used for unknown indication
     Dosage: FORM STRENGTH : 2 MG (MILLIGRAM) ,  BIPERIDEN  , THERAPY START DATE AND END DATE : ASKU
  7. ACETAMINOPHEN [Concomitant]
     Active Substance: ACETAMINOPHEN
     Indication: Product used for unknown indication
     Dosage: FORM STRENGTH : 1000 MG (MILLIGRAM) , / BRAND NAME NOT SPECIFIED , THERAPY START DATE AND END DATE :
  8. LORAZEPAM [Concomitant]
     Active Substance: LORAZEPAM
     Indication: Product used for unknown indication
     Dosage: FORM STRENGTH :  0,5 MG (MILLIGRAM) ,  / BRAND NAME NOT SPECIFIED , THERAPY START DATE AND END DATE
  9. QUETIAPINE [Concomitant]
     Active Substance: QUETIAPINE
     Indication: Product used for unknown indication
     Dosage: FORM STRENGTH : 12,5 MG (MILLIGRAM) / BRAND NAME NOT SPECIFIED , THERAPY START DATE AND END DATE : A
  10. MIRTAZAPINE [Concomitant]
     Active Substance: MIRTAZAPINE
     Indication: Product used for unknown indication
     Dosage: FORM STRENGTH :  3,75 MG (MILLIGRAM) ,  / BRAND NAME NOT SPECIFIED , THERAPY START DATE AND END DATE

REACTIONS (2)
  - Muscle rigidity [Recovered/Resolved]
  - Rhabdomyolysis [Recovered/Resolved]
